FAERS Safety Report 8825615 (Version 2)
Quarter: 2012Q4

REPORT INFORMATION
  Report Type: 
  Country: US (occurrence: US)
  Receive Date: 20121004
  Receipt Date: 20121010
  Transmission Date: 20130627
  Serious: No
  Sender: FDA-Public Use
  Company Number: US-009507513-1210USA002006

PATIENT
  Age: 70 Year
  Sex: Female
  Weight: 61.22 kg

DRUGS (9)
  1. MIRALAX [Suspect]
     Indication: CONSTIPATION
     Dosage: 17 g, prn
     Route: 048
     Dates: start: 2010, end: 2012
  2. MIRALAX [Suspect]
     Indication: MEDICAL OBSERVATION
  3. ATENOLOL [Concomitant]
     Indication: HYPERTENSION
     Dosage: UNK, Unknown
  4. COZAAR [Concomitant]
     Indication: HYPERTENSION
     Dosage: UNK, Unknown
  5. ZETIA [Concomitant]
     Indication: BLOOD CHOLESTEROL INCREASED
     Dosage: UNK, Unknown
  6. PRAVACHOL [Concomitant]
     Indication: BLOOD CHOLESTEROL INCREASED
     Dosage: UNK, Unknown
  7. VICODIN [Concomitant]
     Indication: PAIN
     Dosage: UNK, Unknown
  8. CENTRUM SILVER [Concomitant]
     Indication: ROUTINE HEALTH MAINTENANCE
     Dosage: UNK, Unknown
  9. ASPIRIN [Concomitant]
     Indication: PRODUCT USED FOR UNKNOWN INDICATION
     Dosage: 350 mg, Unknown

REACTIONS (3)
  - Hypertension [Recovering/Resolving]
  - Proctalgia [Recovering/Resolving]
  - Drug effect decreased [Unknown]
